FAERS Safety Report 9222959 (Version 2)
Quarter: 2014Q2

REPORT INFORMATION
  Report Type: Report from Study
  Country: GB (occurrence: GB)
  Receive Date: 20130410
  Receipt Date: 20140613
  Transmission Date: 20141212
  Serious: Yes (Hospitalization)
  Sender: FDA-Public Use
  Company Number: GB-ROCHE-1212133

PATIENT
  Age: 56 Year
  Sex: Male
  Weight: 88.7 kg

DRUGS (16)
  1. BEVACIZUMAB [Suspect]
     Indication: GASTRIC CANCER
     Dosage: 08/FEB/2013, LAST DOSE ADMINISTERED
     Route: 042
     Dates: start: 20130118
  2. CAPECITABINE [Suspect]
     Indication: GASTRIC CANCER
     Dosage: 22/MAR/2013, LAST DOSE ADMINISTERED.
     Route: 048
     Dates: start: 20130118
  3. CISPLATIN [Suspect]
     Indication: GASTRIC CANCER
     Dosage: 01/MAR/2013, LAST DOSE ADMINISTERED.
     Route: 042
     Dates: start: 20130118
  4. EPIRUBICIN [Suspect]
     Indication: GASTRIC CANCER
     Dosage: 01/MAR/2013, LAST DOSE ADMINISTERED.
     Route: 042
     Dates: start: 20130118
  5. LANSOPRAZOLE [Concomitant]
     Route: 048
  6. PARACETAMOL [Concomitant]
     Route: 048
  7. FRESUBIN LIQUIDE [Concomitant]
     Route: 048
  8. ALENDRONIC ACID [Concomitant]
     Route: 048
  9. SIMVASTATIN [Concomitant]
     Route: 048
  10. SAXAGLIPTIN [Concomitant]
  11. CITALOPRAM [Concomitant]
     Route: 065
  12. CALCEOS [Concomitant]
     Route: 048
  13. PERINDOPRIL TERT-BUTYLAMINE [Concomitant]
     Route: 048
  14. QUININE SULFATE [Concomitant]
     Route: 048
  15. ASPIRIN [Concomitant]
     Route: 048
  16. FOLIC ACID [Concomitant]
     Route: 048

REACTIONS (2)
  - Gastrointestinal anastomotic leak [Recovered/Resolved]
  - Dysphagia [Unknown]
